FAERS Safety Report 4756766-4 (Version None)
Quarter: 2005Q3

REPORT INFORMATION
  Report Type: 
  Country: None (occurrence: None)
  Receive Date: 20050830
  Receipt Date: 20050725
  Transmission Date: 20060218
  Serious: Yes (Other)
  Sender: FDA-Public Use
  Company Number: US-MERCK-0508USA00010

PATIENT
  Age: 27 Year
  Sex: Female
  Weight: 64 kg

DRUGS (5)
  1. SINGULAIR [Suspect]
     Indication: ASTHMA
     Route: 048
     Dates: start: 20000101, end: 20040907
  2. SINGULAIR [Suspect]
     Indication: HYPERSENSITIVITY
     Route: 048
     Dates: start: 20000101, end: 20040907
  3. ALLEGRA [Concomitant]
     Indication: RHINITIS ALLERGIC
     Route: 048
  4. FLOVENT [Concomitant]
     Indication: ASTHMA
     Route: 048
  5. ORTHO TRI-CYCLEN [Concomitant]
     Indication: CONTRACEPTION
     Route: 048
     Dates: start: 20020101

REACTIONS (2)
  - ALLERGIC GRANULOMATOUS ANGIITIS [None]
  - COLITIS ULCERATIVE [None]
